FAERS Safety Report 22363780 (Version 1)
Quarter: 2023Q2

REPORT INFORMATION
  Report Type: Report from Study
  Country: CA (occurrence: CA)
  Receive Date: 20230525
  Receipt Date: 20230525
  Transmission Date: 20230722
  Serious: Yes (Other)
  Sender: FDA-Public Use
  Company Number: CA-002147023-NVSC2022CA144869

PATIENT
  Age: 78 Year
  Sex: Female

DRUGS (5)
  1. HYRIMOZ [Suspect]
     Active Substance: ADALIMUMAB-ADAZ
     Indication: Psoriatic arthropathy
     Dosage: UNK (EVERY 15 DAYS)
     Route: 058
  2. HYRIMOZ [Suspect]
     Active Substance: ADALIMUMAB-ADAZ
     Dosage: 40 MG
     Route: 058
     Dates: start: 20220407
  3. METHOTREXATE [Concomitant]
     Active Substance: METHOTREXATE
     Indication: Product used for unknown indication
     Dosage: UNK, BID
     Route: 065
  4. TYLENOL [Concomitant]
     Active Substance: ACETAMINOPHEN
     Indication: Product used for unknown indication
     Dosage: UNK, BID
     Route: 065
  5. VAGIFEM [Concomitant]
     Active Substance: ESTRADIOL
     Indication: Product used for unknown indication
     Dosage: UNK
     Route: 065

REACTIONS (13)
  - Meniere^s disease [Unknown]
  - Arthralgia [Unknown]
  - Pain in extremity [Unknown]
  - Gait disturbance [Unknown]
  - Pain [Unknown]
  - Osteoarthritis [Unknown]
  - Spinal stenosis [Unknown]
  - Musculoskeletal discomfort [Unknown]
  - Limb discomfort [Unknown]
  - Back pain [Unknown]
  - Sitting disability [Unknown]
  - Balance disorder [Unknown]
  - Generalised oedema [Unknown]
